FAERS Safety Report 15240493 (Version 1)
Quarter: 2018Q3

REPORT INFORMATION
  Report Type: Report from Study
  Country: US (occurrence: US)
  Receive Date: 20180804
  Receipt Date: 20180804
  Transmission Date: 20181010
  Serious: No
  Sender: FDA-Public Use
  Company Number: PHEH2018US031311

PATIENT
  Sex: Female

DRUGS (1)
  1. COSENTYX [Suspect]
     Active Substance: SECUKINUMAB
     Indication: PSORIASIS
     Dosage: 300 MG, QMO
     Route: 058

REACTIONS (7)
  - Sensory disturbance [Unknown]
  - Abdominal pain upper [Unknown]
  - Psoriasis [Unknown]
  - Hypersensitivity [Unknown]
  - Dry eye [Unknown]
  - Fibromyalgia [Unknown]
  - Injection site pain [Unknown]
